FAERS Safety Report 10400815 (Version 1)
Quarter: 2014Q3

REPORT INFORMATION
  Report Type: Spontaneous
  Country: US (occurrence: US)
  Receive Date: 20140821
  Receipt Date: 20140821
  Transmission Date: 20150326
  Serious: No
  Sender: FDA-Public Use
  Company Number: US-ASTRAZENECA-2014SE16545

PATIENT
  Age: 81 Year
  Sex: Female
  Weight: 77.1 kg

DRUGS (8)
  1. SPIRIVA [Concomitant]
     Active Substance: TIOTROPIUM BROMIDE MONOHYDRATE
     Indication: INHALATION THERAPY
     Route: 055
  2. SYMBICORT [Suspect]
     Active Substance: BUDESONIDE\FORMOTEROL FUMARATE DIHYDRATE
     Indication: DYSPNOEA
     Dosage: 2 PUFFS 160/4.5 MCG  BID
     Route: 055
     Dates: start: 201312, end: 201403
  3. SYMBICORT [Suspect]
     Active Substance: BUDESONIDE\FORMOTEROL FUMARATE DIHYDRATE
     Indication: CHRONIC OBSTRUCTIVE PULMONARY DISEASE
     Dosage: 2 PUFFS 160/4.5 MCG  BID
     Route: 055
     Dates: start: 201312, end: 201403
  4. ATROVENT [Concomitant]
     Active Substance: IPRATROPIUM BROMIDE
     Indication: NASAL DISCOMFORT
     Dosage: 0.6% 2 SPRAYS DAILY
     Route: 045
  5. HYDROCODONE [Concomitant]
     Active Substance: HYDROCODONE
     Indication: PAIN
     Dosage: PRN PRN
  6. ALKALOL NASAL WASH [Concomitant]
     Indication: NASAL DISCOMFORT
  7. ALBUTEROL. [Suspect]
     Active Substance: ALBUTEROL
     Route: 065
     Dates: start: 20140306, end: 20140306
  8. HYDROCODONE [Concomitant]
     Active Substance: HYDROCODONE
     Indication: OSTEOPOROSIS
     Dosage: PRN PRN

REACTIONS (4)
  - Dizziness [Unknown]
  - Muscle spasms [Unknown]
  - Polymyalgia rheumatica [Unknown]
  - Gait disturbance [Unknown]

NARRATIVE: CASE EVENT DATE: 20140305
